FAERS Safety Report 8076201-0 (Version None)
Quarter: 2012Q1

REPORT INFORMATION
  Report Type: 
  Country: None (occurrence: None)
  Receive Date: 20120117
  Receipt Date: 20120110
  Transmission Date: 20120608
  Serious: Yes (Death)
  Sender: FDA-Public Use
  Company Number: 1000027229

PATIENT
  Age: 62 Year
  Sex: Female

DRUGS (18)
  1. METFORMIN HCL [Suspect]
  2. SALICYLATE (SALICYLATES NOS) [Suspect]
  3. ANGIOTENSIN-CONVERTING ENZYME INHIBITOR (ANGIOTENSIN II ANTAGONISTS, O [Suspect]
  4. FUROSEMIDE [Suspect]
  5. AMLODIPINE [Suspect]
  6. METOLAZONE [Suspect]
  7. FAMOTIDINE [Suspect]
  8. CITALOPRAM HYDROBROMIDE [Suspect]
  9. INSULIN [Suspect]
  10. GABAPENTIN [Suspect]
  11. IRON (IRON) [Suspect]
  12. FLUTICASONE PROPIONATE/SALMETEROL [Suspect]
  13. METOPROLOL SUCCINATE EXTENDED RELEASE [Suspect]
  14. OMEPRAZOLE [Suspect]
  15. CLONIDINE [Suspect]
  16. LOVASTATIN [Suspect]
  17. ALBUTEROL SULFATE AND IPRATROPIUM BROMIDE [Suspect]
  18. DOCUSATE (DOCUSATE) [Suspect]

REACTIONS (1)
  - DEATH [None]
